FAERS Safety Report 8262282-8 (Version None)
Quarter: 2012Q2

REPORT INFORMATION
  Report Type: 
  Country: None (occurrence: None)
  Receive Date: 20120405
  Receipt Date: 20120330
  Transmission Date: 20120825
  Serious: Yes (Death, Hospitalization, Other)
  Sender: FDA-Public Use
  Company Number: JP-ELI_LILLY_AND_COMPANY-JP201201008219

PATIENT
  Sex: Male
  Weight: 57.5 kg

DRUGS (10)
  1. DEXAMETHASONE SODIUM PHOSPHATE [Concomitant]
     Indication: PROPHYLAXIS
     Dosage: 3.3 MG, UNK
     Route: 042
     Dates: start: 20101213, end: 20120116
  2. OXYCONTIN [Concomitant]
     Dosage: 5 MG, BID
     Route: 048
  3. PROCHLORPERAZINE [Concomitant]
     Dosage: 5 MG, BID
     Route: 048
  4. RABEPRAZOLE SODIUM [Concomitant]
     Dosage: 10 MG, QD
     Route: 048
  5. FOIPAN [Concomitant]
     Dosage: 200 MG, TID
     Route: 048
  6. GEMZAR [Suspect]
     Indication: PANCREATIC CARCINOMA STAGE IV
     Dosage: 1000 MG/M2, UNK
     Route: 042
     Dates: start: 20101213, end: 20120116
  7. ALOXI [Concomitant]
     Indication: PROPHYLAXIS
     Dosage: 0.75 G, UNK
     Route: 042
     Dates: start: 20101213, end: 20120116
  8. ETODOLAC [Concomitant]
     Dosage: 200 MG, BID
     Route: 048
  9. TS 1 [Concomitant]
     Indication: PANCREATIC CARCINOMA STAGE IV
     Dosage: 100 MG, UNK
     Route: 048
     Dates: start: 20101213, end: 20120123
  10. URSO 250 [Concomitant]
     Dosage: 300 MG, UNK
     Route: 048
     Dates: start: 20101119

REACTIONS (10)
  - WEIGHT DECREASED [None]
  - INTERSTITIAL LUNG DISEASE [None]
  - PANCREATITIS ACUTE [None]
  - PNEUMOTHORAX [None]
  - DIABETES MELLITUS [None]
  - NEUTROPHIL COUNT DECREASED [None]
  - DISSEMINATED INTRAVASCULAR COAGULATION [None]
  - CANCER PAIN [None]
  - OEDEMA [None]
  - NEOPLASM PROGRESSION [None]
